FAERS Safety Report 15560029 (Version 4)
Quarter: 2019Q3

REPORT INFORMATION
  Report Type: Spontaneous
  Country: GR (occurrence: GR)
  Receive Date: 20181029
  Receipt Date: 20190718
  Transmission Date: 20191004
  Serious: Yes (Other)
  Sender: FDA-Public Use
  Company Number: PHHY2018GR140278

PATIENT
  Age: 63 Year
  Sex: Male

DRUGS (7)
  1. ISONIAZID. [Concomitant]
     Active Substance: ISONIAZID
     Indication: PROPHYLACTIC CHEMOTHERAPY
     Dosage: 300 MG, QD
     Route: 065
     Dates: end: 20180901
  2. ORIZAL [Concomitant]
     Active Substance: AMLODIPINE BESYLATE\OLMESARTAN MEDOXOMIL
     Indication: HYPERTENSION
     Dosage: UNK (20/5 MG)
     Route: 065
  3. VIPDOMET [Concomitant]
     Active Substance: ALOGLIPTIN BENZOATE\METFORMIN HYDROCHLORIDE
     Indication: DIABETES MELLITUS
     Dosage: UNK (12.5/850 MG)
     Route: 065
  4. COSENTYX [Suspect]
     Active Substance: SECUKINUMAB
     Indication: PSORIASIS
     Dosage: 300 MG, QW
     Route: 065
     Dates: start: 20180925, end: 20181022
  5. DIANICOTYL [Concomitant]
     Indication: TUBERCULOSIS
     Dosage: UNK
     Route: 065
  6. ZARATOR [Concomitant]
     Active Substance: ATORVASTATIN CALCIUM
     Indication: HYPERLIPIDAEMIA
     Dosage: 10 MG, UNK
     Route: 065
     Dates: end: 20181022
  7. BLOCATENS [Concomitant]
     Indication: HYPERTENSION
     Dosage: 10 MG, UNK
     Route: 065

REACTIONS (13)
  - Transaminases increased [Recovering/Resolving]
  - Decreased appetite [Recovering/Resolving]
  - Fatigue [Recovered/Resolved]
  - Jaundice [Recovering/Resolving]
  - Nausea [Unknown]
  - Blood bilirubin increased [Recovering/Resolving]
  - Drug-induced liver injury [Recovering/Resolving]
  - Arterial disorder [Unknown]
  - Glomerular vascular disorder [Unknown]
  - Urine abnormality [Unknown]
  - Proteinuria [Unknown]
  - Chromaturia [Recovering/Resolving]
  - Tubulointerstitial nephritis [Unknown]

NARRATIVE: CASE EVENT DATE: 20181022
